FAERS Safety Report 9392639 (Version 1)
Quarter: 2013Q3

REPORT INFORMATION
  Report Type: Spontaneous
  Country: US (occurrence: None)
  Receive Date: 20130708
  Receipt Date: 20130708
  Transmission Date: 20140515
  Serious: Yes (Hospitalization)
  Sender: FDA-Public Use
  Company Number: None

PATIENT
  Age: 60 Year
  Sex: Male

DRUGS (6)
  1. ZELBORAF [Suspect]
     Route: 048
     Dates: start: 201211
  2. PERCOCET [Concomitant]
  3. ALLOPURINOL [Concomitant]
  4. ONDANSETRON [Concomitant]
  5. LEVAQUIN [Concomitant]
  6. CELEXA [Concomitant]

REACTIONS (2)
  - Pneumonia [None]
  - Urinary tract infection [None]
